APPROVED DRUG PRODUCT: THALOMID
Active Ingredient: THALIDOMIDE
Strength: 50MG
Dosage Form/Route: CAPSULE;ORAL
Application: N020785 | Product #001
Applicant: BRISTOL-MYERS SQUIBB CO
Approved: Jul 16, 1998 | RLD: Yes | RS: No | Type: RX